FAERS Safety Report 13834041 (Version 4)
Quarter: 2022Q2

REPORT INFORMATION
  Report Type: Spontaneous
  Country: US (occurrence: US)
  Receive Date: 20170804
  Receipt Date: 20220414
  Transmission Date: 20220721
  Serious: Yes (Hospitalization)
  Sender: FDA-Public Use
  Company Number: US-PFIZER INC-2017149569

PATIENT
  Age: 60 Year
  Sex: Male
  Weight: 86.18 kg

DRUGS (6)
  1. RAPAMUNE [Suspect]
     Active Substance: SIROLIMUS
     Indication: Heart transplant
     Dosage: 1 MG, 4X/DAY
     Route: 048
  2. RAPAMUNE [Suspect]
     Active Substance: SIROLIMUS
     Dosage: 2 MG, 2X/DAY
     Route: 048
  3. MYCOPHENOLIC ACID [Concomitant]
     Active Substance: MYCOPHENOLIC ACID
     Indication: Heart transplant
     Dosage: 180 MG, 2X/DAY
  4. TACROLIMUS [Concomitant]
     Active Substance: TACROLIMUS
     Indication: Heart transplant
     Dosage: 1 MG, 2X/DAY
  5. CELLCEPT [Concomitant]
     Active Substance: MYCOPHENOLATE MOFETIL
     Dosage: UNK
  6. PROGRAF [Concomitant]
     Active Substance: TACROLIMUS
     Dosage: UNK

REACTIONS (6)
  - Vomiting [Recovered/Resolved]
  - Product use in unapproved indication [Unknown]
  - Off label use [Unknown]
  - Chest pain [Recovering/Resolving]
  - Hypertension [Unknown]
  - Nausea [Recovering/Resolving]

NARRATIVE: CASE EVENT DATE: 20170707
